FAERS Safety Report 5802722-4 (Version None)
Quarter: 2008Q2

REPORT INFORMATION
  Report Type: 
  Country: None (occurrence: None)
  Receive Date: 20080627
  Receipt Date: 20071218
  Transmission Date: 20081010
  Serious: Yes (Other)
  Sender: FDA-Public Use
  Company Number: 2007-05830

PATIENT
  Age: 65 Year
  Sex: Male

DRUGS (3)
  1. INFED [Suspect]
     Dosage: INTRAVENOUS
     Route: 042
     Dates: start: 20071211, end: 20071211
  2. DIGOXIN [Concomitant]
  3. CARDIZEM [Concomitant]

REACTIONS (9)
  - ANAPHYLACTIC REACTION [None]
  - ARRHYTHMIA [None]
  - CHEST PAIN [None]
  - DIZZINESS [None]
  - DYSPNOEA [None]
  - FLUSHING [None]
  - HYPERHIDROSIS [None]
  - NAUSEA [None]
  - VISUAL DISTURBANCE [None]
